FAERS Safety Report 9367679 (Version 4)
Quarter: 2014Q1

REPORT INFORMATION
  Report Type: Report from Study
  Country: JP (occurrence: JP)
  Receive Date: 20130625
  Receipt Date: 20140320
  Transmission Date: 20141002
  Serious: Yes (Hospitalization)
  Sender: FDA-Public Use
  Company Number: JP-B.I. PHARMACEUTICALS,INC./RIDGEFIELD-2012-BI-01724NB

PATIENT
  Age: 75 Year
  Sex: Male
  Weight: 50 kg

DRUGS (6)
  1. PRAZAXA [Suspect]
     Indication: ATRIAL FIBRILLATION
     Dosage: 220 MG
     Route: 048
     Dates: start: 20120630, end: 20131126
  2. PRAZAXA [Suspect]
     Indication: PROPHYLAXIS
  3. PLETAAL [Suspect]
     Indication: PROPHYLAXIS
     Dosage: 200 MG
     Route: 048
  4. MINIPRESS [Concomitant]
     Indication: HYPERTENSION
     Dosage: 2 MG
     Route: 048
  5. NITOROL R [Concomitant]
     Indication: CARDIAC FAILURE
     Dosage: 40 MG
     Route: 048
  6. TAMSULOSIN HYDROCHLORIDE [Concomitant]
     Indication: BENIGN PROSTATIC HYPERPLASIA
     Dosage: 0.2 MG
     Route: 048

REACTIONS (2)
  - Cardiac failure [Recovered/Resolved]
  - Diarrhoea [Recovered/Resolved]
